FAERS Safety Report 7754728-6 (Version None)
Quarter: 2011Q3

REPORT INFORMATION
  Report Type: 
  Country: None (occurrence: None)
  Receive Date: 20110915
  Receipt Date: 20110912
  Transmission Date: 20111222
  Serious: Yes (Death, Life-Threatening)
  Sender: FDA-Public Use
  Company Number: DE-BRISTOL-MYERS SQUIBB COMPANY-15661770

PATIENT
  Age: 57 Year
  Sex: Male
  Weight: 93 kg

DRUGS (7)
  1. CYTARABINE [Suspect]
     Indication: ACUTE MYELOID LEUKAEMIA
     Dosage: LAST DOSE:08MAR11
     Route: 042
     Dates: start: 20110302, end: 20110308
  2. IDARUBICIN HCL [Suspect]
     Indication: ACUTE MYELOID LEUKAEMIA
     Dosage: SOLN FOR INJ,LAST DOSE:4MAR11
     Route: 042
     Dates: start: 20110301, end: 20110304
  3. ANIDULAFUNGIN [Suspect]
     Route: 042
     Dates: start: 20110314
  4. GEMTUZUMAB OZOGAMICIN [Suspect]
     Indication: ACUTE MYELOID LEUKAEMIA
     Route: 042
     Dates: start: 20110302, end: 20110302
  5. ETOPOSIDE [Suspect]
     Indication: ACUTE MYELOID LEUKAEMIA
     Route: 042
     Dates: start: 20110302, end: 20110304
  6. TRETINOIN [Suspect]
     Indication: ACUTE MYELOID LEUKAEMIA
     Dosage: DOSE RED:30MG,10MAR11-19MAR11
     Route: 042
     Dates: start: 20110307, end: 20110319
  7. VORICONAZOLE [Suspect]
     Route: 048
     Dates: start: 20110228

REACTIONS (2)
  - HEPATITIS TOXIC [None]
  - SEPSIS [None]
